FAERS Safety Report 6042477-4 (Version None)
Quarter: 2009Q1

REPORT INFORMATION
  Report Type: 
  Country: None (occurrence: None)
  Receive Date: 20090116
  Receipt Date: 20090113
  Transmission Date: 20090719
  Serious: No
  Sender: FDA-Public Use
  Company Number: US-B.I. PHARMACEUTICALS,INC./RIDGEFIELD-2008-BP-18985BP

PATIENT
  Sex: Female

DRUGS (7)
  1. SPIRIVA [Suspect]
     Indication: CHRONIC OBSTRUCTIVE PULMONARY DISEASE
     Dates: start: 20030101
  2. SPIRIVA [Suspect]
     Indication: EMPHYSEMA
     Dates: start: 20070101
  3. SEREVENT [Concomitant]
     Indication: DYSPNOEA
  4. DILTIAZIN ER [Concomitant]
  5. LISINOPRIL [Concomitant]
  6. HYDROCHLORATHIAZIDE [Concomitant]
  7. GABAPENTIN [Concomitant]

REACTIONS (1)
  - THROAT TIGHTNESS [None]
